FAERS Safety Report 6622483-9 (Version None)
Quarter: 2010Q1

REPORT INFORMATION
  Report Type: 
  Country: None (occurrence: None)
  Receive Date: 20100310
  Receipt Date: 20100202
  Transmission Date: 20100710
  Serious: No
  Sender: FDA-Public Use
  Company Number: US-BIOGENIDEC-2010BI003511

PATIENT
  Age: 45 Year
  Sex: Male

DRUGS (4)
  1. AVONEX [Suspect]
     Indication: MULTIPLE SCLEROSIS
     Route: 030
     Dates: start: 20100109, end: 20100116
  2. AVONEX [Suspect]
     Route: 030
     Dates: start: 20100116, end: 20100123
  3. AVONEX [Suspect]
     Route: 030
     Dates: start: 20100123, end: 20100130
  4. AVONEX [Suspect]
     Route: 030
     Dates: start: 20100130

REACTIONS (5)
  - BACK PAIN [None]
  - INFLUENZA LIKE ILLNESS [None]
  - MUSCLE SPASMS [None]
  - NEURALGIA [None]
  - PAIN IN EXTREMITY [None]
